FAERS Safety Report 9702885 (Version 1)
Quarter: 2013Q4

REPORT INFORMATION
  Report Type: Spontaneous
  Country: US (occurrence: None)
  Receive Date: 20131120
  Receipt Date: 20131120
  Transmission Date: 20140711
  Serious: Yes (Other)
  Sender: FDA-Public Use
  Company Number: 2013UCU075000342

PATIENT
  Age: 71 Year
  Sex: Male
  Weight: 75.3 kg

DRUGS (23)
  1. CIMZIA [Suspect]
     Indication: CROHN^S DISEASE
     Dates: start: 20100608
  2. METHOTREXATE [Suspect]
     Dates: start: 20050215, end: 200807
  3. MESALAMINE [Concomitant]
  4. BACTRIM [Concomitant]
  5. METRONIDAZOLE [Concomitant]
  6. CIPROFLOXACIN [Concomitant]
  7. PREDNISONE [Concomitant]
  8. BUDESONIDE [Concomitant]
  9. AZATHIOPRINE [Concomitant]
  10. 6-MP [Concomitant]
  11. INFLIXIMAB [Concomitant]
  12. DIPHENOXYLATE W/ATROPINE SULFATE [Concomitant]
  13. MULTIVITAMINS [Concomitant]
  14. PEPCID AC [Concomitant]
  15. LOPERAMIDE [Concomitant]
  16. FERROUS SULFATE [Concomitant]
  17. CHOLESTYRAMINE LIGHT [Concomitant]
  18. CALCIUM [Concomitant]
  19. CARVEDILOL [Concomitant]
  20. MYCOPHENOLATE [Concomitant]
  21. MOFETIL [Concomitant]
  22. FENOFIBRATE [Concomitant]
  23. TAMUSULOSIN [Concomitant]

REACTIONS (2)
  - Opportunistic infection [None]
  - Herpes zoster [None]
